FAERS Safety Report 13888530 (Version 1)
Quarter: 2017Q3

REPORT INFORMATION
  Report Type: Report from Study
  Country: NL (occurrence: NL)
  Receive Date: 20170822
  Receipt Date: 20170822
  Transmission Date: 20171127
  Serious: Yes (Hospitalization, Other)
  Sender: FDA-Public Use
  Company Number: PHHO2011NL023859

PATIENT
  Age: 46 Year
  Sex: Female
  Weight: 70 kg

DRUGS (6)
  1. PAMIDRONATE [Suspect]
     Active Substance: PAMIDRONATE DISODIUM
     Indication: HYPERCALCAEMIA
     Dosage: 90 MG, UNK
     Route: 042
     Dates: start: 201103
  2. PAMIDRONATE [Suspect]
     Active Substance: PAMIDRONATE DISODIUM
     Indication: METASTASES TO BONE
  3. NADROPARIN [Concomitant]
     Active Substance: NADROPARIN
     Indication: PRODUCT USED FOR UNKNOWN INDICATION
     Dosage: UNK
     Route: 058
     Dates: start: 20110316
  4. NACL [Concomitant]
     Active Substance: SODIUM CHLORIDE
     Indication: PRODUCT USED FOR UNKNOWN INDICATION
     Route: 065
  5. DOCETAXEL. [Suspect]
     Active Substance: DOCETAXEL
     Indication: MALIGNANT NEOPLASM PROGRESSION
     Dosage: 50 MG/M2, UNK
     Route: 042
     Dates: start: 20110331
  6. PAZOPANIB [Suspect]
     Active Substance: PAZOPANIB
     Indication: MALIGNANT NEOPLASM PROGRESSION
     Dosage: 600 MG, QD
     Route: 048
     Dates: start: 20110324

REACTIONS (2)
  - Dyspnoea [Recovered/Resolved]
  - Hepatic enzyme increased [Recovered/Resolved]

NARRATIVE: CASE EVENT DATE: 20110407
